FAERS Safety Report 6868373-8 (Version None)
Quarter: 2010Q3

REPORT INFORMATION
  Report Type: 
  Country: None (occurrence: None)
  Receive Date: 20100722
  Receipt Date: 20080627
  Transmission Date: 20110219
  Serious: No
  Sender: FDA-Public Use
  Company Number: US-PFIZER INC-2008043667

PATIENT
  Sex: Male
  Weight: 84.82 kg

DRUGS (2)
  1. CHANTIX [Suspect]
     Indication: SMOKING CESSATION THERAPY
     Dates: start: 20070301
  2. SPIRIVA [Suspect]

REACTIONS (2)
  - RASH MACULAR [None]
  - URTICARIA [None]
